FAERS Safety Report 6255310-2 (Version None)
Quarter: 2009Q3

REPORT INFORMATION
  Report Type: 
  Country: None (occurrence: None)
  Receive Date: 20090702
  Receipt Date: 20090624
  Transmission Date: 20100115
  Serious: Yes (Hospitalization)
  Sender: FDA-Public Use
  Company Number: DE-JNJFOC-20090608863

PATIENT
  Age: 28 Year
  Sex: Male

DRUGS (6)
  1. INVEGA [Suspect]
     Route: 048
  2. INVEGA [Suspect]
     Indication: DRUG USE FOR UNKNOWN INDICATION
     Route: 048
  3. LEVOMEPROMAZIN [Concomitant]
     Route: 048
  4. LEVOMEPROMAZIN [Concomitant]
     Route: 048
  5. LEVOMEPROMAZIN [Concomitant]
     Route: 048
  6. PRONEURIN [Concomitant]
     Route: 048

REACTIONS (3)
  - ERECTILE DYSFUNCTION [None]
  - HOSPITALISATION [None]
  - HYPERPROLACTINAEMIA [None]
